FAERS Safety Report 16523733 (Version 2)
Quarter: 2019Q3

REPORT INFORMATION
  Report Type: Spontaneous
  Country: BR (occurrence: BR)
  Receive Date: 20190702
  Receipt Date: 20190709
  Transmission Date: 20191004
  Serious: Yes (Death, Other)
  Sender: FDA-Public Use
  Company Number: BR-PFIZER INC-2019209175

PATIENT
  Age: 92 Year
  Sex: Male

DRUGS (1)
  1. XALKORI [Suspect]
     Active Substance: CRIZOTINIB
     Indication: NEOPLASM MALIGNANT
     Dosage: 200 MG, 2X/DAY(200 MG IN THE MORNING AND 200 MG AT NIGHT)
     Dates: start: 2019, end: 2019

REACTIONS (3)
  - Diarrhoea [Recovering/Resolving]
  - Respiratory failure [Fatal]
  - Decreased appetite [Unknown]

NARRATIVE: CASE EVENT DATE: 2019
